FAERS Safety Report 23215884 (Version 1)
Quarter: 2023Q4

REPORT INFORMATION
  Report Type: Spontaneous
  Country: US (occurrence: US)
  Receive Date: 20231122
  Receipt Date: 20231122
  Transmission Date: 20240110
  Serious: Yes (Other)
  Sender: FDA-Public Use
  Company Number: US-AMGEN-USASP2023206178

PATIENT
  Age: 63 Year
  Sex: Male

DRUGS (4)
  1. CINACALCET HYDROCHLORIDE [Suspect]
     Active Substance: CINACALCET HYDROCHLORIDE
     Indication: Hypercalcaemia
     Dosage: UNK
     Route: 065
  2. CINACALCET HYDROCHLORIDE [Suspect]
     Active Substance: CINACALCET HYDROCHLORIDE
     Indication: Hyperparathyroidism
  3. OCTREOTIDE [Concomitant]
     Active Substance: OCTREOTIDE
     Indication: Hypercalcaemia
     Dosage: UNK, QMO
     Route: 065
  4. OCTREOTIDE [Concomitant]
     Active Substance: OCTREOTIDE
     Indication: Hyperparathyroidism

REACTIONS (3)
  - Parathyroid tumour malignant [Recovering/Resolving]
  - Metastases to bone [Recovering/Resolving]
  - Blood calcium increased [Recovered/Resolved]
